FAERS Safety Report 14409048 (Version 3)
Quarter: 2018Q1

REPORT INFORMATION
  Report Type: Spontaneous
  Country: JP (occurrence: JP)
  Receive Date: 20180119
  Receipt Date: 20180226
  Transmission Date: 20180509
  Serious: Yes (Death, Other)
  Sender: FDA-Public Use
  Company Number: JP-009507513-1801JPN001492J

PATIENT
  Age: 66 Year
  Sex: Male
  Weight: 44 kg

DRUGS (11)
  1. PURSENNID (SENNOSIDES) [Concomitant]
     Active Substance: SENNOSIDES A AND B
     Indication: CONSTIPATION
     Dosage: 12 MG, QD
     Route: 048
     Dates: start: 20170202
  2. BELSOMRA [Concomitant]
     Active Substance: SUVOREXANT
     Indication: INSOMNIA
     Dosage: 20 MG, QD
     Route: 048
     Dates: start: 20171219
  3. CALONAL [Concomitant]
     Active Substance: ACETAMINOPHEN
     Indication: CANCER PAIN
     Dosage: 500 DF, TID
     Route: 048
     Dates: start: 20170317
  4. OXYCONTIN [Concomitant]
     Active Substance: OXYCODONE HYDROCHLORIDE
     Indication: CANCER PAIN
     Dosage: 20 MG, BID
     Route: 048
     Dates: start: 20171010
  5. LYRICA [Concomitant]
     Active Substance: PREGABALIN
     Indication: CANCER PAIN
     Dosage: 150 MG, BID
     Route: 048
     Dates: start: 20170905
  6. SPIOLTO RESPIMAT [Concomitant]
     Active Substance: OLODATEROL HYDROCHLORIDE\TIOTROPIUM BROMIDE MONOHYDRATE
     Indication: CHRONIC OBSTRUCTIVE PULMONARY DISEASE
     Dosage: UNK
     Route: 055
     Dates: start: 20170202
  7. MAGNESIUM OXIDE. [Concomitant]
     Active Substance: MAGNESIUM OXIDE
     Indication: CONSTIPATION
     Dosage: 330 DF, TID
     Route: 048
     Dates: start: 20170317
  8. RANMARK [Concomitant]
     Active Substance: DENOSUMAB
     Indication: METASTASES TO SPINE
     Dosage: UNK UNK, QM
     Route: 058
     Dates: start: 20170830
  9. KEYTRUDA [Suspect]
     Active Substance: PEMBROLIZUMAB
     Indication: NON-SMALL CELL LUNG CANCER STAGE IIIA
     Dosage: 200 MG, Q3W
     Route: 041
     Dates: start: 20170829, end: 20171219
  10. AMITIZA [Concomitant]
     Active Substance: LUBIPROSTONE
     Indication: CONSTIPATION
     Dosage: 24 MICROGRAM, BID
     Route: 048
     Dates: start: 20170202
  11. DENOTAS CHEWABLE COMBINATION TABLETS [Concomitant]
     Indication: PROPHYLAXIS
     Dosage: 2 DF, UNK
     Route: 048
     Dates: start: 20171128

REACTIONS (1)
  - Sudden death [Fatal]

NARRATIVE: CASE EVENT DATE: 20180107
